FAERS Safety Report 5064233-6 (Version None)
Quarter: 2006Q3

REPORT INFORMATION
  Report Type: 
  Country: None (occurrence: None)
  Receive Date: 20060728
  Receipt Date: 20060718
  Transmission Date: 20061208
  Serious: Yes (Hospitalization)
  Sender: FDA-Public Use
  Company Number: BE-JNJFOC-20060703640

PATIENT
  Age: 68 Year
  Sex: Female
  Weight: 45 kg

DRUGS (12)
  1. REMICADE [Suspect]
     Indication: RHEUMATOID ARTHRITIS
     Route: 042
  2. METHOTREXATE [Concomitant]
     Indication: RHEUMATOID ARTHRITIS
     Route: 065
  3. ZANTAC [Concomitant]
     Route: 065
  4. ALDACTONE [Concomitant]
     Route: 065
  5. MEDROL [Concomitant]
     Indication: RHEUMATOID ARTHRITIS
     Route: 065
  6. MOTILIUM [Concomitant]
     Route: 065
  7. TILDIEM [Concomitant]
     Route: 065
  8. DUPHALAC [Concomitant]
     Route: 065
  9. MOVICOL [Concomitant]
     Route: 065
  10. CONTRAMAL [Concomitant]
     Dosage: 3 X 20 DROPS DAILY
     Route: 065
  11. BURINEX [Concomitant]
     Route: 065
  12. CLEXANE [Concomitant]
     Route: 065

REACTIONS (11)
  - ALBUMINURIA [None]
  - CHRONIC MYELOMONOCYTIC LEUKAEMIA [None]
  - CONFUSIONAL STATE [None]
  - GENERAL PHYSICAL CONDITION [None]
  - GENERALISED OEDEMA [None]
  - HYPONATRAEMIA [None]
  - INAPPROPRIATE ANTIDIURETIC HORMONE SECRETION [None]
  - PNEUMONIA [None]
  - RASH [None]
  - RESPIRATORY FAILURE [None]
  - VENTRICULAR DYSFUNCTION [None]
